FAERS Safety Report 7458105-7 (Version None)
Quarter: 2011Q2

REPORT INFORMATION
  Report Type: 
  Country: None (occurrence: None)
  Receive Date: 20110504
  Receipt Date: 20110428
  Transmission Date: 20111010
  Serious: Yes (Death, Other)
  Sender: FDA-Public Use
  Company Number: IL-CELGENEUS-082-C5013-10110403

PATIENT
  Sex: Male
  Weight: 89.3 kg

DRUGS (34)
  1. LENALIDOMIDE [Suspect]
     Dosage: 10 MILLIGRAM
     Route: 048
     Dates: start: 20071227, end: 20080623
  2. MELPHALAN [Suspect]
     Route: 048
     Dates: start: 20071227
  3. PREDNISONE [Suspect]
     Route: 048
     Dates: end: 20081022
  4. WHOLE BLOOD [Concomitant]
     Route: 051
     Dates: start: 20090331, end: 20090331
  5. WHOLE BLOOD [Concomitant]
     Route: 051
     Dates: start: 20100207, end: 20100207
  6. WHOLE BLOOD [Concomitant]
     Dosage: 2 UNITS
     Route: 051
     Dates: start: 20100301, end: 20100301
  7. OXYGEN [Concomitant]
     Route: 065
  8. EPOETIN BETA [Concomitant]
     Indication: ANAEMIA
     Route: 065
     Dates: start: 20080326, end: 20100319
  9. WHOLE BLOOD [Concomitant]
     Route: 051
     Dates: start: 20100304, end: 20100304
  10. FUROSEMIDE [Concomitant]
     Route: 065
  11. NEUPOGEN [Concomitant]
     Indication: PANCYTOPENIA
     Route: 051
     Dates: start: 20070801
  12. WHOLE BLOOD [Concomitant]
     Dosage: 2 UNITS
     Route: 051
     Dates: start: 20100121, end: 20100121
  13. RECORMON [Concomitant]
     Route: 065
  14. NEUPOGEN [Concomitant]
     Indication: NEUTROPENIA
     Route: 051
  15. LENALIDOMIDE [Suspect]
     Dosage: 10 MILLIGRAM
     Route: 048
     Dates: start: 20080806, end: 20090203
  16. REVLIMID [Suspect]
     Route: 065
  17. WHOLE BLOOD [Concomitant]
     Dosage: 2 UNITS
     Route: 051
     Dates: start: 20100126, end: 20100126
  18. WHOLE BLOOD [Concomitant]
     Dosage: 2 UNITS
     Route: 051
     Dates: start: 20100214, end: 20100214
  19. SIMVASTATIN [Concomitant]
     Route: 065
  20. MELPHALAN [Suspect]
     Route: 048
     Dates: end: 20081022
  21. WHOLE BLOOD [Concomitant]
     Indication: PANCYTOPENIA
     Route: 051
     Dates: start: 20090128, end: 20090128
  22. WHOLE BLOOD [Concomitant]
     Route: 051
     Dates: start: 20091206, end: 20091207
  23. WHOLE BLOOD [Concomitant]
     Route: 051
     Dates: start: 20091224, end: 20091224
  24. WHOLE BLOOD [Concomitant]
     Route: 051
     Dates: start: 20100223, end: 20100223
  25. LOSARTAN [Concomitant]
     Route: 065
  26. ZAROXOLYN [Concomitant]
     Route: 065
  27. PREDNISONE [Suspect]
     Route: 048
     Dates: start: 20071227
  28. SPIRONOLACTONE [Concomitant]
     Route: 065
  29. NEUPOGEN [Concomitant]
     Indication: NEUTROPENIA
     Route: 065
     Dates: start: 20080117, end: 20090217
  30. WHOLE BLOOD [Concomitant]
     Route: 051
     Dates: start: 20100106, end: 20100106
  31. WHOLE BLOOD [Concomitant]
     Route: 051
     Dates: start: 20100218, end: 20100218
  32. GASTRO [Concomitant]
     Route: 065
  33. DOPAMINE HCL [Concomitant]
     Route: 065
     Dates: start: 20100301
  34. DOPAMINE HCL [Concomitant]

REACTIONS (2)
  - MYOCARDIAL ISCHAEMIA [None]
  - ACUTE MYELOID LEUKAEMIA [None]
